FAERS Safety Report 8024852-1 (Version None)
Quarter: 2012Q1

REPORT INFORMATION
  Report Type: 
  Country: None (occurrence: None)
  Receive Date: 20120105
  Receipt Date: 20120102
  Transmission Date: 20120608
  Serious: Yes (Life-Threatening, Hospitalization)
  Sender: FDA-Public Use
  Company Number: FR-JNJFOC-20120100140

PATIENT
  Age: 53 Year
  Sex: Female

DRUGS (5)
  1. HALDOL [Suspect]
     Route: 048
  2. LORAZEPAM [Concomitant]
     Indication: BIPOLAR I DISORDER
     Route: 065
  3. DEPAKOTE [Suspect]
     Indication: PRODUCT USED FOR UNKNOWN INDICATION
     Route: 065
     Dates: start: 20110907, end: 20111001
  4. HALDOL [Suspect]
     Route: 048
  5. HALDOL [Suspect]
     Indication: PRODUCT USED FOR UNKNOWN INDICATION
     Route: 048

REACTIONS (5)
  - SEPTIC SHOCK [None]
  - PNEUMONIA ASPIRATION [None]
  - OVERDOSE [None]
  - SOMNOLENCE [None]
  - DIARRHOEA [None]
